FAERS Safety Report 15773376 (Version 1)
Quarter: 2018Q4

REPORT INFORMATION
  Report Type: Spontaneous
  Country: CN (occurrence: CN)
  Receive Date: 20181228
  Receipt Date: 20181228
  Transmission Date: 20190205
  Serious: Yes (Other)
  Sender: FDA-Public Use
  Company Number: PHHY2018CN186317

PATIENT
  Age: 59 Year
  Sex: Female

DRUGS (8)
  1. TASIGNA [Suspect]
     Active Substance: NILOTINIB
     Dosage: 600 MG, QD (400MG IN THE MORNING, 200MG IN THE EVENING)
     Route: 048
     Dates: start: 20181208, end: 20181214
  2. HYDROXYCARBAMIDE [Concomitant]
     Active Substance: HYDROXYUREA
     Indication: PRODUCT USED FOR UNKNOWN INDICATION
     Dosage: 0.5 OT, BID
     Route: 048
     Dates: start: 20181203, end: 20181204
  3. TASIGNA [Suspect]
     Active Substance: NILOTINIB
     Indication: CHRONIC MYELOID LEUKAEMIA
     Dosage: 400 MG, BID
     Route: 048
     Dates: start: 20181204
  4. CEFOPERAZONE [Concomitant]
     Active Substance: CEFOPERAZONE
     Indication: PRODUCT USED FOR UNKNOWN INDICATION
     Dosage: 2.5 OT, Q12H
     Route: 042
     Dates: start: 20181203, end: 20181211
  5. PIPERACILLIN AND TAZOBACTAM [Concomitant]
     Active Substance: PIPERACILLIN SODIUM\TAZOBACTAM SODIUM
     Indication: PRODUCT USED FOR UNKNOWN INDICATION
     Dosage: 6.0 OT, Q12H
     Route: 042
     Dates: start: 20181211, end: 20181221
  6. POTASSIUM MAGNESIUM ASPARTATE [Concomitant]
     Active Substance: MAGNESIUM ASPARTATE\POTASSIUM ASPARTATE
     Indication: PRODUCT USED FOR UNKNOWN INDICATION
     Dosage: UNK
     Route: 042
     Dates: start: 20181208, end: 20181221
  7. CIMETIDINE [Concomitant]
     Active Substance: CIMETIDINE
     Indication: PRODUCT USED FOR UNKNOWN INDICATION
     Dosage: 0.4 OT, QD
     Route: 042
     Dates: start: 20181204, end: 20181207
  8. TASIGNA [Suspect]
     Active Substance: NILOTINIB
     Dosage: 200 MG, BID
     Route: 048
     Dates: start: 20181216

REACTIONS (13)
  - Tricuspid valve incompetence [Unknown]
  - Hyperbilirubinaemia [Unknown]
  - Pyrexia [Recovered/Resolved]
  - Pericardial effusion [Unknown]
  - Liver function test abnormal [Recovered/Resolved]
  - Chest discomfort [Recovered/Resolved]
  - Mitral valve incompetence [Unknown]
  - Generalised oedema [Unknown]
  - Dyspnoea [Recovered/Resolved]
  - Chills [Unknown]
  - Left atrial enlargement [Unknown]
  - Cardiac failure [Recovering/Resolving]
  - Abdominal distension [Unknown]

NARRATIVE: CASE EVENT DATE: 20181207
